FAERS Safety Report 9527519 (Version 2)
Quarter: 2014Q1

REPORT INFORMATION
  Report Type: Spontaneous
  Country: US (occurrence: None)
  Receive Date: 20130913
  Receipt Date: 20140304
  Transmission Date: 20141002
  Serious: Yes (Death, Hospitalization)
  Sender: FDA-Public Use
  Company Number: 2012US000851

PATIENT
  Age: 65 Year
  Sex: Female
  Weight: 57.2 kg

DRUGS (27)
  1. PONATINIB [Suspect]
     Indication: BLAST CRISIS IN MYELOGENOUS LEUKAEMIA
     Route: 048
     Dates: start: 20120923, end: 20121005
  2. TYLENOL WITH CODEINE NO.3 (CODEINE PHOSPHATE, PARACETAMOL) [Concomitant]
  3. DIAMOX (ACETAZOLAMIDE) [Concomitant]
  4. ZYLOPRIM (ALLOPURINOL) [Concomitant]
  5. ASPIRIN (ACETYLSALICYLIC ACID) [Concomitant]
  6. ATROPINE (ATROPINE SULFATE) [Concomitant]
  7. ALPHAGAN (BRIMONIDINE TARTRATE) [Concomitant]
  8. HYGROTON (CHLORTALIDONE) [Concomitant]
  9. CLEOCIN-T (CLINDAMYCIN PHOSPHATE) [Concomitant]
  10. COSOPT (DORZOLAMIDE HYDROCHLORIDE, TIMOLOL MALEATE) [Concomitant]
  11. VANIQA (EFLORNITHINE HYDROCHLORIDE) [Concomitant]
  12. LIDEX (FLUOCINONIDE) [Concomitant]
  13. LASIX (FUROSEMIDE) [Concomitant]
  14. XALATAN (LATANOPROST) [Concomitant]
  15. LIDOCAINE (LIDOCAINE HYDROCHLORIDE) [Concomitant]
  16. LISINOPRIL (LISINOPRIL) [Concomitant]
  17. GLUCOPHAGE (METFORMIN HYDROCHLORIDE) [Concomitant]
  18. METHADONE (METHADONE HYDROCHLORIDE) [Concomitant]
  19. TOPROL (METOPROLOL SUCCINATE) [Concomitant]
  20. REMERON (MIRTAZAPINE) [Concomitant]
  21. PROCARDIA (NIFEDIPINE) [Concomitant]
  22. K-DUR (POTASSIUM CHLORIDE) [Concomitant]
  23. PRED FORTE (PREDINISOLONE ACETATE) [Concomitant]
  24. PRED-COLACE (CASANTHRANOL, DOCUSATE SODIUM) [Concomitant]
  25. ZOCOR (SIMVASTATIN) [Concomitant]
  26. TRAVATANZ (TRAVOPROST) [Concomitant]
  27. RETIN-A (TRETINOIN) [Concomitant]

REACTIONS (26)
  - Myocardial infarction [None]
  - Leukocytosis [None]
  - Treatment failure [None]
  - Disorientation [None]
  - Blood creatinine increased [None]
  - Agitation [None]
  - Atrial fibrillation [None]
  - Monocyte count increased [None]
  - Blast cells present [None]
  - Pulmonary oedema [None]
  - Urine output decreased [None]
  - Bradycardia [None]
  - Hypotension [None]
  - Tumour lysis syndrome [None]
  - Musculoskeletal stiffness [None]
  - Heart rate irregular [None]
  - Haemoglobin decreased [None]
  - Blood glucose increased [None]
  - Blood sodium decreased [None]
  - Blood potassium increased [None]
  - Blood alkaline phosphatase increased [None]
  - Aspartate aminotransferase increased [None]
  - Cardiac arrest [None]
  - Renal failure [None]
  - Cardiac failure congestive [None]
  - Refusal of treatment by patient [None]
